FAERS Safety Report 5339623-4 (Version None)
Quarter: 2007Q2

REPORT INFORMATION
  Report Type: 
  Country: None (occurrence: None)
  Receive Date: 20070525
  Receipt Date: 20070525
  Transmission Date: 20071010
  Serious: Yes (Other)
  Sender: FDA-Public Use
  Company Number: None

PATIENT
  Age: 68 Year
  Sex: Male

DRUGS (1)
  1. IVERMECTIN [Suspect]
     Indication: PNEUMONIA
     Dosage: 12.2 MG DAILY SQ
     Route: 058
     Dates: start: 20061216, end: 20061224

REACTIONS (6)
  - ELECTROCARDIOGRAM QRS COMPLEX PROLONGED [None]
  - PNEUMONIA [None]
  - SEPSIS [None]
  - SKIN EXFOLIATION [None]
  - STRONGYLOIDIASIS [None]
  - TOXIC EPIDERMAL NECROLYSIS [None]
